FAERS Safety Report 5779027-3 (Version None)
Quarter: 2008Q2

REPORT INFORMATION
  Report Type: 
  Country: None (occurrence: None)
  Receive Date: 20080619
  Receipt Date: 20080617
  Transmission Date: 20081010
  Serious: Yes (Life-Threatening)
  Sender: FDA-Public Use
  Company Number: FR-BRISTOL-MYERS SQUIBB COMPANY-14218663

PATIENT
  Age: 37 Year
  Sex: Male

DRUGS (2)
  1. SUSTIVA [Suspect]
     Dates: start: 20071201
  2. TRUVADA [Concomitant]

REACTIONS (1)
  - HEPATIC NECROSIS [None]
